FAERS Safety Report 9302717 (Version 1)
Quarter: 2013Q2

REPORT INFORMATION
  Report Type: Report from Study
  Country: JP (occurrence: JP)
  Receive Date: 20130522
  Receipt Date: 20130522
  Transmission Date: 20140414
  Serious: Yes (Death, Life-Threatening, Hospitalization, Other)
  Sender: FDA-Public Use
  Company Number: PHHY2010JP54571

PATIENT
  Age: 43 Year
  Sex: Male
  Weight: 67 kg

DRUGS (23)
  1. ICL670A [Suspect]
     Indication: MYELODYSPLASTIC SYNDROME
     Dosage: 625 MG, DAILY
     Route: 048
     Dates: start: 20090902, end: 20091026
  2. SOLANAX [Concomitant]
     Dosage: 0.8 MG
     Route: 048
     Dates: start: 20090924, end: 20091026
  3. ZITHROMAC [Concomitant]
     Dosage: 500 MG
     Route: 048
     Dates: start: 20091009, end: 200911
  4. LENDORMIN [Concomitant]
     Dosage: 0.5 MG
     Route: 048
     Dates: start: 20090924, end: 20091026
  5. GRACEVIT [Concomitant]
     Dosage: 100 MG, UNK
     Route: 048
     Dates: start: 20091013, end: 20091015
  6. ADONA [Concomitant]
     Indication: PROPHYLAXIS
     Dosage: 100 MG, UNK
     Dates: end: 20091024
  7. KAYTWO [Concomitant]
     Indication: DISSEMINATED INTRAVASCULAR COAGULATION
     Dosage: 2 DF
     Dates: start: 20091023, end: 20091030
  8. SOLU-MEDROL [Concomitant]
     Indication: ACUTE RESPIRATORY DISTRESS SYNDROME
     Dosage: 1000 MG, UNK
     Dates: start: 20091026
  9. SOLU-MEDROL [Concomitant]
     Dosage: 500 MG, UNK
     Dates: end: 20091030
  10. SOLU-CORTEF [Concomitant]
     Indication: ACUTE RESPIRATORY DISTRESS SYNDROME
     Dosage: 100 MG, UNK
     Dates: start: 20091026, end: 20091026
  11. DORMICUM [Concomitant]
     Indication: RESPIRATORY THERAPY
     Dosage: 120 NG, UNK
     Dates: start: 20091029, end: 20091030
  12. ANTITHROMBIN III [Concomitant]
     Indication: DISSEMINATED INTRAVASCULAR COAGULATION
     Dosage: 1 DF, UNK
     Dates: start: 20091025, end: 20091027
  13. ANTITHROMBIN III [Concomitant]
     Dosage: 1 DF
     Dates: start: 20091025, end: 20091027
  14. NOVOLIN R [Concomitant]
     Indication: DIABETES MELLITUS
     Dosage: UNK
     Dates: start: 20091027, end: 20091030
  15. BACTRAMIN [Concomitant]
     Indication: INFECTION PROPHYLAXIS
     Dosage: 3 DF
     Dates: start: 20091025, end: 20091030
  16. VOLVIX [Concomitant]
     Indication: PROPHYLAXIS
     Dosage: 1 DF, UNK
     Dates: start: 20091024, end: 20091025
  17. LEPETAN [Concomitant]
     Dosage: 0.4 MG, UNK
     Dates: start: 20091025, end: 20091030
  18. HUMAN SERUM ALBUMIN [Concomitant]
     Dosage: 2 DF, UNK
     Dates: start: 20091029
  19. KENKETSU VENOGLOBULIN-IH [Concomitant]
     Dosage: 2 DF, UNK
     Dates: start: 20091027, end: 20091027
  20. ELASPOL [Concomitant]
     Indication: ACUTE RESPIRATORY DISTRESS SYNDROME
     Dosage: UNK
     Dates: start: 20091026
  21. CONCENTRATED RED CELLS [Concomitant]
     Dosage: 2 UNITS EVERY WEEK
     Dates: start: 20090902, end: 20090922
  22. CONCENTRATED RED CELLS [Concomitant]
     Dosage: 2 UNITS EVERY 3 TO 4 DAYS
     Dates: start: 20090925, end: 20090930
  23. ZANTAC [Concomitant]
     Dosage: 50 MG, UNK
     Dates: start: 20091024, end: 20091025

REACTIONS (8)
  - Myelodysplastic syndrome transformation [Fatal]
  - Interstitial lung disease [Fatal]
  - Pulmonary haemorrhage [Fatal]
  - Pneumonia [Not Recovered/Not Resolved]
  - Bronchitis [Not Recovered/Not Resolved]
  - Disseminated intravascular coagulation [Unknown]
  - Hepatic function abnormal [Unknown]
  - Renal impairment [Unknown]
